FAERS Safety Report 17895874 (Version 1)
Quarter: 2020Q2

REPORT INFORMATION
  Report Type: Spontaneous
  Country: US (occurrence: US)
  Receive Date: 20200615
  Receipt Date: 20200615
  Transmission Date: 20200714
  Serious: Yes (Other)
  Sender: FDA-Public Use
  Company Number: US-PFIZER INC-2020223520

PATIENT
  Age: 55 Year
  Sex: Male
  Weight: 80 kg

DRUGS (24)
  1. LIDOCAINE HCL [Suspect]
     Active Substance: LIDOCAINE HYDROCHLORIDE
     Indication: LOCAL ANAESTHESIA
     Dosage: UNK (1.5%) TEST DOSE
     Route: 008
  2. LIDOCAINE HCL [Suspect]
     Active Substance: LIDOCAINE HYDROCHLORIDE
     Dosage: 5 ML (FIRST INJECTION OF 2%)
     Route: 008
  3. NITROGLYCERIN. [Suspect]
     Active Substance: NITROGLYCERIN
     Indication: ANAESTHESIA
     Dosage: 80 UG MIN
     Route: 042
  4. NITROGLYCERIN. [Concomitant]
     Active Substance: NITROGLYCERIN
     Dosage: 5, APPLIED DAILY
     Route: 061
  5. VECURONIUM BROMIDE. [Suspect]
     Active Substance: VECURONIUM BROMIDE
     Indication: GENERAL ANAESTHESIA
     Dosage: 8 MG (8 MG 4 MIN AFTER A PRIMING DOSE OF 0.8 MG)
  6. PROBENECID. [Concomitant]
     Active Substance: PROBENECID
     Dosage: UNK, DAILY
  7. DILTIAZEM. [Concomitant]
     Active Substance: DILTIAZEM
     Dosage: 60 MG, 3X/DAY
     Route: 048
  8. SUFENTANIL CITRATE. [Suspect]
     Active Substance: SUFENTANIL CITRATE
     Indication: GENERAL ANAESTHESIA
     Dosage: 40 UG
     Route: 042
  9. ATENOLOL. [Concomitant]
     Active Substance: ATENOLOL
     Dosage: 50 MG, 2X/DAY
     Route: 048
  10. ATENOLOL. [Concomitant]
     Active Substance: ATENOLOL
     Dosage: 50 MG
     Route: 048
  11. ENALAPRIL [Concomitant]
     Active Substance: ENALAPRIL
     Dosage: 5 MG, DAILY
     Route: 048
  12. ENALAPRIL [Concomitant]
     Active Substance: ENALAPRIL
     Dosage: 5 MG
     Route: 048
  13. INDAPAMIDE. [Concomitant]
     Active Substance: INDAPAMIDE
     Dosage: 2.5 MG, DAILY
  14. LIDOCAINE HCL [Suspect]
     Active Substance: LIDOCAINE HYDROCHLORIDE
     Dosage: 5 ML (SECOND INJECTION OF 2%)
     Route: 008
  15. LIDOCAINE HCL [Suspect]
     Active Substance: LIDOCAINE HYDROCHLORIDE
     Dosage: UNK (FINAL LC DOSE)
     Route: 008
  16. LIDOCAINE-EPINEPHRINE [Suspect]
     Active Substance: EPINEPHRINE\LIDOCAINE
     Indication: ANAESTHESIA
     Dosage: UNK (1:200000, 3 ML) EPIDURAL LIDOCAINE (LC) WITH ADRENALINE
     Route: 008
  17. ISOFLURANE. [Suspect]
     Active Substance: ISOFLURANE
     Indication: ANAESTHESIA
     Dosage: (0.2 %) INHALED
     Route: 045
  18. NITROUS OXIDE\OXYGEN [Suspect]
     Active Substance: NITROUS OXIDE\OXYGEN
     Indication: ANAESTHESIA
     Dosage: UNK (50%) N2O/O2
  19. ALPRAZOLAM. [Concomitant]
     Active Substance: ALPRAZOLAM
     Dosage: 0.5 MG, 2X/DAY
     Route: 048
  20. DIAZEPAM. [Concomitant]
     Active Substance: DIAZEPAM
     Dosage: 10 MG
     Route: 048
  21. NITROGLYCERIN. [Concomitant]
     Active Substance: NITROGLYCERIN
     Dosage: 0.4 MG, AS NEEDED
     Route: 060
  22. LIDOCAINE HCL [Suspect]
     Active Substance: LIDOCAINE HYDROCHLORIDE
     Dosage: 5 ML (THIRD INJECTION OF 2%)
     Route: 008
  23. PENTOTHAL [Suspect]
     Active Substance: THIOPENTAL SODIUM
     Indication: GENERAL ANAESTHESIA
     Dosage: 250 MG
     Route: 042
  24. OXYCODONE [Concomitant]
     Active Substance: OXYCODONE
     Dosage: 5 MG, 4X/DAY (AS NEEDED)

REACTIONS (1)
  - Atrioventricular dissociation [Recovered/Resolved]
